FAERS Safety Report 4989184-4 (Version None)
Quarter: 2006Q1

REPORT INFORMATION
  Report Type: 
  Country: None (occurrence: None)
  Receive Date: 20060314
  Receipt Date: 20060111
  Transmission Date: 20060701
  Serious: Yes (Other)
  Sender: FDA-Public Use
  Company Number: 2006-00067

PATIENT
  Age: 81 Year
  Sex: Male
  Weight: 85.3 kg

DRUGS (12)
  1. VELCADE [Suspect]
     Indication: MULTIPLE MYELOMA
     Dosage: 1.30 MG/M2, 2/WEEK, INTRAVENOUS
     Route: 042
     Dates: start: 20051213
  2. DEMADEX [Concomitant]
  3. COUMADIN [Concomitant]
  4. INSULIN [Concomitant]
  5. DIGIXIN (DIGOXIN) [Concomitant]
  6. MAGNESIUM (MAGNESIUM) [Concomitant]
  7. POTASSIUM (POTASSIUM) [Concomitant]
  8. ZOLOFT [Concomitant]
  9. CARDIZEM [Concomitant]
  10. VITAMIN B1 TAB [Concomitant]
  11. VITAMIN B6 [Concomitant]
  12. VITAMIN E/001105/ (TOCOPHEROL) [Concomitant]

REACTIONS (8)
  - FATIGUE [None]
  - FLUID RETENTION [None]
  - LIVER FUNCTION TEST ABNORMAL [None]
  - NAUSEA [None]
  - NEUROPATHY PERIPHERAL [None]
  - OEDEMA PERIPHERAL [None]
  - PLATELET COUNT DECREASED [None]
  - WEIGHT INCREASED [None]
